FAERS Safety Report 13426770 (Version 2)
Quarter: 2017Q2

REPORT INFORMATION
  Report Type: Spontaneous
  Country: US (occurrence: US)
  Receive Date: 20170411
  Receipt Date: 20170519
  Transmission Date: 20170830
  Serious: No
  Sender: FDA-Public Use
  Company Number: US-PFIZER INC-2017153251

PATIENT
  Age: 85 Year
  Sex: Female
  Weight: 58 kg

DRUGS (8)
  1. DILTIAZEM. [Concomitant]
     Active Substance: DILTIAZEM
     Dosage: 120 MG, 1X/DAY
     Route: 048
  2. FLUOROMETHOLONE. [Concomitant]
     Active Substance: FLUOROMETHOLONE
     Indication: LACRIMATION INCREASED
     Dosage: 1 DF, 4X/DAY, 1 DROP INTO BOTH EYES
     Dates: start: 20170402
  3. SOTALOL. [Concomitant]
     Active Substance: SOTALOL
     Dosage: 160 MG, 2X/DAY
     Route: 048
     Dates: start: 2000
  4. WARFARIN [Concomitant]
     Active Substance: WARFARIN
     Indication: ATRIAL FIBRILLATION
     Dosage: 40 MG, WEEKLY, 5MG EVERY DAY EXCEPT TUESDAY WHEN SHE TAKES 10MG
     Route: 048
  5. LEVOTHYROXINE. [Concomitant]
     Active Substance: LEVOTHYROXINE
     Indication: HYPOTHYROIDISM
     Dosage: 50 UG, 1X/DAY
     Route: 048
  6. PANTOPRAZOLE [Concomitant]
     Active Substance: PANTOPRAZOLE
     Indication: GASTROOESOPHAGEAL REFLUX DISEASE
     Dosage: 40 MG, UNK, TRYING TO TAKE 2 A WEEK
     Route: 048
  7. ESTRADIOL. [Suspect]
     Active Substance: ESTRADIOL
     Indication: HOT FLUSH
     Dosage: 0.5 DF (A COUPLE OF TIMES A WEEK)
     Route: 048
  8. LOSARTAN. [Concomitant]
     Active Substance: LOSARTAN
     Indication: BLOOD PRESSURE ABNORMAL
     Dosage: 100 MG, 1X/DAY
     Route: 048

REACTIONS (1)
  - Skin disorder [Unknown]
